FAERS Safety Report 16463768 (Version 1)
Quarter: 2019Q2

REPORT INFORMATION
  Report Type: Report from Study
  Country: KR (occurrence: KR)
  Receive Date: 20190621
  Receipt Date: 20190621
  Transmission Date: 20190711
  Serious: Yes (Other)
  Sender: FDA-Public Use
  Company Number: KR-PFIZER INC-2019261752

PATIENT
  Age: 62 Year
  Sex: Female
  Weight: 55 kg

DRUGS (15)
  1. DIABEX [Concomitant]
     Active Substance: METFORMIN HYDROCHLORIDE
     Indication: HYPERGLYCAEMIA
     Dosage: 500 MG, 3X/DAY
     Route: 048
     Dates: start: 20190319
  2. NUCYNTA ER [Concomitant]
     Active Substance: TAPENTADOL HYDROCHLORIDE
     Indication: PARAESTHESIA
     Dosage: 50 MG, 1X/DAY
     Route: 048
     Dates: start: 20190528, end: 20190608
  3. PACLITAXEL. [Suspect]
     Active Substance: PACLITAXEL
     Indication: OVARIAN CANCER
     Dosage: 280 MG, EVERY 3 WEEKS
     Route: 042
     Dates: start: 20190318
  4. NEURONTIN [Concomitant]
     Active Substance: GABAPENTIN
     Indication: PARAESTHESIA
     Dosage: 600 MG, 3X/DAY
     Route: 048
     Dates: start: 20190521, end: 20190617
  5. NUCYNTA ER [Concomitant]
     Active Substance: TAPENTADOL HYDROCHLORIDE
     Dosage: 50 MG, 2X/DAY
     Route: 048
     Dates: start: 20190609
  6. CURAN [Concomitant]
     Active Substance: RANITIDINE HYDROCHLORIDE
     Indication: GASTRIC DISORDER
     Dosage: 150 MG, 1X/DAY
     Route: 048
     Dates: start: 20190610, end: 20190612
  7. MEDILAC DS [Concomitant]
     Indication: CONSTIPATION
     Dosage: 1 DF (C), 2X/DAY, 0.25G
     Route: 048
     Dates: start: 20190611, end: 20190617
  8. NORZYME [Concomitant]
     Indication: DYSPEPSIA
     Dosage: 457.7 MG, 3X/DAY (ENTERIC COATED MICROTABLET; 25000)
     Route: 048
     Dates: start: 20190611, end: 20190617
  9. BEVACIZUMAB. [Suspect]
     Active Substance: BEVACIZUMAB
     Indication: OVARIAN CANCER
     Dosage: 15 MG/KG, EVERY 3 WEEKS
     Route: 042
     Dates: start: 20190408
  10. CARBOPLATIN. [Suspect]
     Active Substance: CARBOPLATIN
     Indication: OVARIAN CANCER
     Dosage: 693.5 MG, EVERY 3 WEEKS
     Route: 042
     Dates: start: 20190318
  11. DEXAMETHASONE. [Concomitant]
     Active Substance: DEXAMETHASONE
     Indication: ALLERGY PROPHYLAXIS
     Dosage: 2 MG, 3X/DAY
     Route: 048
     Dates: start: 20190610, end: 20190612
  12. STOGAR [Concomitant]
     Active Substance: LAFUTIDINE
     Indication: GASTRIC DISORDER
     Dosage: 10 MG, 2X/DAY
     Route: 048
     Dates: start: 20190611, end: 20190617
  13. SYNTHROID [Concomitant]
     Active Substance: LEVOTHYROXINE SODIUM
     Indication: THYROID CANCER
     Dosage: 0.125 MG, 1X/DAY
     Route: 048
     Dates: start: 20180627
  14. CRAVIT [Concomitant]
     Active Substance: LEVOFLOXACIN
     Indication: C-REACTIVE PROTEIN INCREASED
     Dosage: 500 MG, 1X/DAY
     Route: 048
     Dates: start: 20190609, end: 20190617
  15. FERINJECT [Concomitant]
     Active Substance: FERRIC CARBOXYMALTOSE
     Indication: ANAEMIA
     Dosage: 1000 MG, 1X/DAY, ROUTE WAS IVF
     Route: 042
     Dates: start: 20190610, end: 20190610

REACTIONS (1)
  - Dyspnoea [Recovered/Resolved]

NARRATIVE: CASE EVENT DATE: 20190617
